FAERS Safety Report 25748051 (Version 1)
Quarter: 2025Q3

REPORT INFORMATION
  Report Type: 
  Country: CN (occurrence: CN)
  Receive Date: 20250901
  Receipt Date: 20250901
  Transmission Date: 20251021
  Serious: Yes (Other)
  Sender: JIANGSU HANSOH PHARMACEUTICAL GROUP CO., LTD.
  Company Number: CN-Hansoh-20252190015844

PATIENT
  Age: 66 Year
  Sex: Male

DRUGS (1)
  1. BORTEZOMIB [Suspect]
     Active Substance: BORTEZOMIB
     Indication: Monoclonal gammopathy
     Dosage: 2 MG, 1 TABLET, 2 TIMES/WK
     Route: 058
     Dates: start: 20250817, end: 20250820

REACTIONS (2)
  - Flatulence [Recovering/Resolving]
  - Off label use [Unknown]

NARRATIVE: CASE EVENT DATE: 20250820
